FAERS Safety Report 4690940-0 (Version None)
Quarter: 2005Q2

REPORT INFORMATION
  Report Type: 
  Country: None (occurrence: None)
  Receive Date: 20050615
  Receipt Date: 20050607
  Transmission Date: 20051028
  Serious: Yes (Life-Threatening)
  Sender: FDA-Public Use
  Company Number: ES-ROCHE-407106

PATIENT
  Age: 50 Year
  Sex: Male

DRUGS (6)
  1. ANEXATE [Suspect]
     Indication: DRUG DEPENDENCE
     Route: 042
     Dates: start: 20050514, end: 20050514
  2. ZERIT [Concomitant]
     Route: 048
     Dates: start: 19960615
  3. EPIVIR [Concomitant]
     Route: 048
     Dates: start: 19960615
  4. VIRAMUNE [Concomitant]
     Route: 048
     Dates: start: 19960615
  5. DECENTAN [Concomitant]
     Indication: SCHIZOPHRENIA
     Route: 048
     Dates: start: 19980615
  6. TOFRANIL [Concomitant]
     Dosage: FORM REPORTED AS PILLS
     Route: 048
     Dates: start: 19860615

REACTIONS (2)
  - ANGIONEUROTIC OEDEMA [None]
  - RESPIRATORY FAILURE [None]
